FAERS Safety Report 8623263-5 (Version None)
Quarter: 2012Q3

REPORT INFORMATION
  Report Type: 
  Country: None (occurrence: None)
  Receive Date: 20120815
  Receipt Date: 20120810
  Transmission Date: 20120928
  Serious: Yes (Hospitalization)
  Sender: FDA-Public Use
  Company Number: 2020311019

PATIENT
  Sex: Male
  Weight: 80.7403 kg

DRUGS (27)
  1. ASPIRIN [Concomitant]
  2. MORPHINE SULFATE INJ [Concomitant]
  3. VITAMIN D [Concomitant]
  4. LIDOCAINE/PRILOCAINE (EMLA /00675501/) [Concomitant]
  5. PLAVIX [Concomitant]
  6. SINGULAIR [Concomitant]
  7. PANTOPRAZOLE [Concomitant]
  8. FLONASE [Concomitant]
  9. DIPHENHYDRAMINE HCL [Concomitant]
  10. HIZENTRA [Suspect]
  11. LYRICA (PREGAEALIN) [Concomitant]
  12. MULTIVITAMIN [Concomitant]
  13. FISH OIL (FISH OIL) [Concomitant]
  14. LMX (LIDOCAINE) [Concomitant]
  15. POTASSIUM CHLORIDE [Concomitant]
  16. MINOXIDIL [Concomitant]
  17. MIRALAX [Concomitant]
  18. LASIX [Concomitant]
  19. LISINOPRIL [Concomitant]
  20. SYMBICORT [Concomitant]
  21. DUONEB [Concomitant]
  22. HIZENTRA [Suspect]
     Indication: IMMUNODEFICIENCY COMMON VARIABLE
     Dosage: (8 MG, 1X/WEEK, 4 GM (20 ML) SUBCUTANEOUS), (8 G 1X/WEEK, (40 ML) MULTIPLE SITES SUBCUTANEOUS)
     Route: 058
     Dates: start: 20120615
  23. HIZENTRA [Suspect]
     Indication: HYPOGLOBULINAEMIA
     Dosage: (8 MG, 1X/WEEK, 4 GM (20 ML) SUBCUTANEOUS), (8 G 1X/WEEK, (40 ML) MULTIPLE SITES SUBCUTANEOUS)
     Route: 058
     Dates: start: 20120615
  24. HIZENTRA [Suspect]
     Indication: IMMUNODEFICIENCY COMMON VARIABLE
     Dosage: (8 MG, 1X/WEEK, 4 GM (20 ML) SUBCUTANEOUS), (8 G 1X/WEEK, (40 ML) MULTIPLE SITES SUBCUTANEOUS)
     Route: 058
     Dates: start: 20120127, end: 20120127
  25. HIZENTRA [Suspect]
     Indication: HYPOGLOBULINAEMIA
     Dosage: (8 MG, 1X/WEEK, 4 GM (20 ML) SUBCUTANEOUS), (8 G 1X/WEEK, (40 ML) MULTIPLE SITES SUBCUTANEOUS)
     Route: 058
     Dates: start: 20120127, end: 20120127
  26. PAXIL [Concomitant]
  27. CRESTOR [Concomitant]

REACTIONS (15)
  - FATIGUE [None]
  - CHEST PAIN [None]
  - INJECTION SITE HAEMATOMA [None]
  - PYREXIA [None]
  - JOINT SWELLING [None]
  - CHEST DISCOMFORT [None]
  - PNEUMONIA [None]
  - ASTHENIA [None]
  - RASH [None]
  - HEADACHE [None]
  - DYSPNOEA [None]
  - BRONCHIECTASIS [None]
  - OEDEMA PERIPHERAL [None]
  - INFUSION SITE SWELLING [None]
  - CHILLS [None]
